FAERS Safety Report 15111030 (Version 3)
Quarter: 2018Q3

REPORT INFORMATION
  Report Type: Spontaneous
  Country: GB (occurrence: GB)
  Receive Date: 20180705
  Receipt Date: 20180906
  Transmission Date: 20181010
  Serious: Yes (Other)
  Sender: FDA-Public Use
  Company Number: GB-SA-2018SA163573

PATIENT
  Age: 26 Year
  Sex: Male

DRUGS (8)
  1. LEMTRADA [Suspect]
     Active Substance: ALEMTUZUMAB
     Dosage: 12 MG, UNK
     Route: 041
     Dates: start: 20180618
  2. PARACETAMOL [Suspect]
     Active Substance: ACETAMINOPHEN
     Dosage: UNK, UNK
     Route: 048
  3. FAMCICLOVIR. [Suspect]
     Active Substance: FAMCICLOVIR
     Dosage: 250 MG, UNK
     Route: 048
  4. LEMTRADA [Suspect]
     Active Substance: ALEMTUZUMAB
     Indication: MULTIPLE SCLEROSIS
     Dosage: 12 MG, UNK
     Route: 041
     Dates: start: 20180618
  5. IBUPROFEN. [Suspect]
     Active Substance: IBUPROFEN
     Dosage: 400 MG, UNK
     Route: 048
  6. METHYLPREDNISOLONE. [Suspect]
     Active Substance: METHYLPREDNISOLONE
     Dosage: 500MG IN 100MLS NACL  0.9%
     Route: 042
  7. LANSOPRAZOLE WINTHROP [Suspect]
     Active Substance: LANSOPRAZOLE
     Dosage: 15 MG, UNK
     Route: 048
  8. CHLORPHENAMINE HYDROCHLORIDE [Suspect]
     Active Substance: CHLORPHENIRAMINE HYDROCHLORIDE
     Dosage: 10 MG, UNK
     Route: 041

REACTIONS (5)
  - Headache [Recovering/Resolving]
  - Chest discomfort [Unknown]
  - Chest pain [Unknown]
  - Inappropriate schedule of drug administration [Unknown]
  - Pulmonary embolism [Unknown]

NARRATIVE: CASE EVENT DATE: 20180618
